FAERS Safety Report 6318413-X (Version None)
Quarter: 2009Q3

REPORT INFORMATION
  Report Type: 
  Country: None (occurrence: None)
  Receive Date: 20090821
  Receipt Date: 20090813
  Transmission Date: 20100115
  Serious: Yes (Other)
  Sender: FDA-Public Use
  Company Number: US-PFIZER INC-2009255537

PATIENT
  Sex: Female

DRUGS (15)
  1. CELEBREX [Suspect]
     Indication: ARTHRITIS
     Dosage: 100 MG, 2X/DAY
  2. NEURONTIN [Concomitant]
  3. PROPRANOLOL [Concomitant]
  4. LEVOTHYROXINE SODIUM [Concomitant]
  5. PRILOSEC [Concomitant]
  6. ZANAFLEX [Concomitant]
  7. TYLENOL W/ CODEINE NO. 3 [Concomitant]
  8. TOPAMAX [Concomitant]
  9. TRAZODONE [Concomitant]
  10. ATIVAN [Concomitant]
  11. FIORINAL [Concomitant]
  12. ALBUTEROL [Concomitant]
  13. FLOVENT [Concomitant]
  14. ATARAX [Concomitant]
  15. ZOFRAN [Concomitant]

REACTIONS (4)
  - FIBROMYALGIA [None]
  - LIGAMENT INJURY [None]
  - LIMB INJURY [None]
  - WEIGHT INCREASED [None]
